FAERS Safety Report 24146651 (Version 1)
Quarter: 2024Q3

REPORT INFORMATION
  Report Type: Spontaneous
  Country: CN (occurrence: CN)
  Receive Date: 20240729
  Receipt Date: 20240729
  Transmission Date: 20241017
  Serious: Yes (Hospitalization)
  Sender: B BRAUN
  Company Number: CN-B.Braun Medical Inc.-2159707

PATIENT
  Age: 90 Year
  Sex: Male

DRUGS (1)
  1. NUTRILIPID I.V. FAT EMULSION [Suspect]
     Active Substance: SOYBEAN OIL
     Indication: Nutritional supplementation
     Route: 042

REACTIONS (5)
  - Abdominal pain [Recovering/Resolving]
  - Muscle tightness [Recovering/Resolving]
  - Hyperhidrosis [Recovering/Resolving]
  - Depressed level of consciousness [Recovering/Resolving]
  - Pallor [Recovering/Resolving]
